FAERS Safety Report 19599242 (Version 1)
Quarter: 2021Q3

REPORT INFORMATION
  Report Type: Spontaneous
  Country: US (occurrence: US)
  Receive Date: 20210722
  Receipt Date: 20210722
  Transmission Date: 20211014
  Serious: No
  Sender: FDA-Public Use
  Company Number: US-ALKERMES INC.-ALK-2021-003657

PATIENT
  Age: 65 Year
  Sex: Male

DRUGS (2)
  1. VIVITROL [Suspect]
     Active Substance: NALTREXONE
     Indication: ALCOHOLISM
     Dosage: 380 MILLIGRAM, QMO
     Route: 030
     Dates: start: 20210702
  2. VIVITROL [Suspect]
     Active Substance: NALTREXONE
     Dosage: 380 MILLIGRAM, QMO
     Route: 030
     Dates: start: 20210601, end: 20210601

REACTIONS (7)
  - Withdrawal syndrome [Recovered/Resolved]
  - Blood alcohol increased [Recovered/Resolved]
  - Therapeutic response decreased [Not Recovered/Not Resolved]
  - Alcoholism [Not Recovered/Not Resolved]
  - Tremor [Recovered/Resolved]
  - Feeling drunk [Not Recovered/Not Resolved]
  - Euphoric mood [Not Recovered/Not Resolved]

NARRATIVE: CASE EVENT DATE: 2021
